FAERS Safety Report 21870532 (Version 17)
Quarter: 2023Q4

REPORT INFORMATION
  Report Type: Report from Study
  Country: CA (occurrence: CA)
  Receive Date: 20230117
  Receipt Date: 20231016
  Transmission Date: 20240109
  Serious: Yes (Other)
  Sender: FDA-Public Use
  Company Number: CA-IPSEN Group, Research and Development-2022-25192

PATIENT
  Age: 63 Year
  Sex: Female
  Weight: 33.5 kg

DRUGS (16)
  1. LANREOTIDE ACETATE [Suspect]
     Active Substance: LANREOTIDE ACETATE
     Indication: Gastroenteropancreatic neuroendocrine tumour disease
     Dosage: 120 MG EVERY 4 WEEKS
     Route: 058
     Dates: start: 20220802, end: 20230127
  2. LANREOTIDE ACETATE [Suspect]
     Active Substance: LANREOTIDE ACETATE
     Dosage: RESUMED TREATMENT ON 09-MAY-2023
     Route: 058
     Dates: start: 20230509
  3. LANREOTIDE ACETATE [Suspect]
     Active Substance: LANREOTIDE ACETATE
     Route: 058
  4. HYDROMORPHONE HCL [Suspect]
     Active Substance: HYDROMORPHONE HYDROCHLORIDE
     Indication: Product used for unknown indication
     Dosage: 1 CO
     Route: 065
  5. HYDROMORPHONE HCL [Suspect]
     Active Substance: HYDROMORPHONE HYDROCHLORIDE
     Dosage: 1-2 CO PRN
     Route: 065
  6. INSULIN NOS [Suspect]
     Active Substance: INSULIN NOS
     Indication: Product used for unknown indication
     Dosage: 10 UNITS AT BREAKFAST
     Route: 065
  7. POLYETHYLENE GLYCOL [Concomitant]
     Active Substance: POLYETHYLENE GLYCOL
     Dosage: 3350 POWDER PRN
  8. UNSPECIFIED INGREDIENT [Concomitant]
     Active Substance: UNSPECIFIED INGREDIENT
     Dosage: 10-2 CO WITH MEALS
  9. SENOKOT [Concomitant]
     Active Substance: SENNOSIDES
     Dosage: 1-2 CO PRN
  10. OMEPRAZOLE [Concomitant]
     Active Substance: OMEPRAZOLE
     Dosage: 40 MG 1 CO PID
  11. MIXTARD HUMAN 70/30 [Concomitant]
     Active Substance: INSULIN HUMAN
     Dosage: 30 HM 10 - 12 UNITS TWICE A DAY
  12. DOMPERIDONE [Concomitant]
     Active Substance: DOMPERIDONE
     Dosage: 10 MG PRN
  13. TRAMADOL [Concomitant]
     Active Substance: TRAMADOL\TRAMADOL HYDROCHLORIDE
  14. ESTROGENS [Concomitant]
     Active Substance: ESTROGENS
     Dosage: 6 UNITIS 3 TIMES A DAY
  15. CREON [Concomitant]
     Active Substance: PANCRELIPASE AMYLASE\PANCRELIPASE LIPASE\PANCRELIPASE PROTEASE
     Dosage: 3 CAPS WITH EACH MEAL
     Route: 048
  16. DEXAMETHASONE [Concomitant]
     Active Substance: DEXAMETHASONE
     Dosage: 3 CAPS WITH EACH MEAL

REACTIONS (65)
  - Suicidal ideation [Not Recovered/Not Resolved]
  - Brain neoplasm benign [Not Recovered/Not Resolved]
  - Nephrolithiasis [Unknown]
  - Tearfulness [Not Recovered/Not Resolved]
  - Anger [Recovering/Resolving]
  - Respiratory rate increased [Recovered/Resolved]
  - Pain [Unknown]
  - Gastrointestinal pain [Unknown]
  - Constipation [Unknown]
  - Injection site pain [Not Recovered/Not Resolved]
  - Weight decreased [Not Recovered/Not Resolved]
  - Asthenia [Not Recovered/Not Resolved]
  - Hypoaesthesia eye [Not Recovered/Not Resolved]
  - Asthenopia [Not Recovered/Not Resolved]
  - Pain [Recovering/Resolving]
  - Abdominal pain upper [Not Recovered/Not Resolved]
  - Asthenia [Not Recovered/Not Resolved]
  - Decreased appetite [Not Recovered/Not Resolved]
  - Respiratory rate increased [Not Recovered/Not Resolved]
  - Fat tissue decreased [Not Recovered/Not Resolved]
  - Pyrexia [Recovered/Resolved]
  - Blood glucose increased [Recovering/Resolving]
  - Thirst [Not Recovered/Not Resolved]
  - Dry mouth [Not Recovered/Not Resolved]
  - Depression [Recovering/Resolving]
  - Tongue blistering [Not Recovered/Not Resolved]
  - Oral mucosal blistering [Not Recovered/Not Resolved]
  - Ageusia [Not Recovered/Not Resolved]
  - Respiratory rate increased [Not Recovered/Not Resolved]
  - Injection site mass [Not Recovered/Not Resolved]
  - Dizziness [Not Recovered/Not Resolved]
  - Fatigue [Not Recovered/Not Resolved]
  - Loss of personal independence in daily activities [Not Recovered/Not Resolved]
  - Drug ineffective [Unknown]
  - Adverse drug reaction [Unknown]
  - Central nervous system lesion [Unknown]
  - Weight increased [Unknown]
  - Increased appetite [Recovering/Resolving]
  - Back pain [Recovering/Resolving]
  - Fatigue [Not Recovered/Not Resolved]
  - Asthenia [Not Recovered/Not Resolved]
  - Rest regimen [Unknown]
  - Off label use [Unknown]
  - Blood glucose increased [Not Recovered/Not Resolved]
  - Headache [Not Recovered/Not Resolved]
  - Nausea [Not Recovered/Not Resolved]
  - Fatigue [Not Recovered/Not Resolved]
  - Paraesthesia [Unknown]
  - Hypoaesthesia [Unknown]
  - Myopathy [Unknown]
  - Muscular weakness [Unknown]
  - Off label use [Unknown]
  - Weight decreased [Not Recovered/Not Resolved]
  - Depression [Not Recovered/Not Resolved]
  - Psychiatric symptom [Not Recovered/Not Resolved]
  - Injection site mass [Not Recovered/Not Resolved]
  - Tooth deposit [Not Recovered/Not Resolved]
  - Gingival swelling [Not Recovered/Not Resolved]
  - Tooth discolouration [Not Recovered/Not Resolved]
  - Asthenia [Not Recovered/Not Resolved]
  - Nausea [Not Recovered/Not Resolved]
  - Constipation [Not Recovered/Not Resolved]
  - Fluid intake reduced [Not Recovered/Not Resolved]
  - Dental caries [Not Recovered/Not Resolved]
  - Dry mouth [Not Recovered/Not Resolved]

NARRATIVE: CASE EVENT DATE: 20220101
